FAERS Safety Report 13300711 (Version 1)
Quarter: 2017Q1

REPORT INFORMATION
  Report Type: Spontaneous
  Country: US (occurrence: US)
  Receive Date: 20170306
  Receipt Date: 20170306
  Transmission Date: 20170428
  Serious: No
  Sender: FDA-Public Use
  Company Number: None

PATIENT
  Age: 49 Year
  Sex: Female
  Weight: 60.75 kg

DRUGS (13)
  1. TAURINE [Concomitant]
     Active Substance: TAURINE
  2. IODORAL (POTASSIUM IODIDE) [Concomitant]
  3. MULTIVITAMIN [Concomitant]
     Active Substance: VITAMINS
  4. TURMERIC [Concomitant]
     Active Substance: TURMERIC
  5. ADDERALL [Concomitant]
     Active Substance: AMPHETAMINE ASPARTATE\AMPHETAMINE SULFATE\DEXTROAMPHETAMINE SACCHARATE\DEXTROAMPHETAMINE SULFATE
  6. FLONASE SENSIMIST ALLERGY RELIEF [Suspect]
     Active Substance: FLUTICASONE FUROATE
     Indication: MULTIPLE ALLERGIES
     Dosage: ?          OTHER STRENGTH:MCG;QUANTITY:2 SPRAY(S);?
     Route: 055
     Dates: start: 20170221, end: 20170301
  7. LEXAPRO [Concomitant]
     Active Substance: ESCITALOPRAM OXALATE
  8. FISH OIL [Concomitant]
     Active Substance: FISH OIL
  9. ACETYL L-CARNITINE [Concomitant]
     Active Substance: ACETYLCARNITINE
  10. TULSI TEA [Concomitant]
  11. LAMICTAL [Concomitant]
     Active Substance: LAMOTRIGINE
  12. BACTRIM [Concomitant]
     Active Substance: SULFAMETHOXAZOLE\TRIMETHOPRIM
  13. COLLAGEN [Concomitant]
     Active Substance: COLLAGEN

REACTIONS (7)
  - Depressed mood [None]
  - Product quality issue [None]
  - Depression [None]
  - Crying [None]
  - Agitation [None]
  - Stress at work [None]
  - Premenstrual syndrome [None]

NARRATIVE: CASE EVENT DATE: 20170227
